FAERS Safety Report 12163452 (Version 1)
Quarter: 2016Q1

REPORT INFORMATION
  Report Type: Spontaneous
  Country: CA (occurrence: CA)
  Receive Date: 20160309
  Receipt Date: 20160309
  Transmission Date: 20160526
  Serious: Yes (Hospitalization, Other)
  Sender: FDA-Public Use
  Company Number: CA-TEVA-641885ACC

PATIENT
  Age: 25 Year
  Sex: Male
  Weight: 90 kg

DRUGS (3)
  1. ETOPOSIDE. [Concomitant]
     Active Substance: ETOPOSIDE
  2. CISPLATIN INJECTION [Suspect]
     Active Substance: CISPLATIN
     Indication: METASTASES TO MENINGES
  3. CISPLATIN INJECTION [Suspect]
     Active Substance: CISPLATIN
     Indication: PINEAL GERMINOMA
     Route: 042

REACTIONS (14)
  - Neutropenia [Recovered/Resolved]
  - CNS germinoma [Recovered/Resolved]
  - Dialysis [Recovered/Resolved]
  - Blood urea increased [Recovered/Resolved]
  - Diarrhoea [Recovered/Resolved]
  - Vomiting [Recovered/Resolved]
  - Oropharyngeal pain [Recovered/Resolved]
  - Sepsis [Recovered/Resolved]
  - Acute kidney injury [Recovered/Resolved]
  - Blood creatinine increased [Recovered/Resolved]
  - Chromaturia [Recovered/Resolved]
  - Blood culture positive [Recovered/Resolved]
  - Jaundice [Recovered/Resolved]
  - Urine output decreased [Recovered/Resolved]
